FAERS Safety Report 7902573-0 (Version None)
Quarter: 2011Q4

REPORT INFORMATION
  Report Type: 
  Country: None (occurrence: None)
  Receive Date: 20111108
  Receipt Date: 20111024
  Transmission Date: 20120403
  Serious: Yes (Hospitalization, Other)
  Sender: FDA-Public Use
  Company Number: GB-WATSON-2011-18488

PATIENT
  Sex: Female

DRUGS (1)
  1. TRIMETHOPRIM [Suspect]
     Indication: ACNE

REACTIONS (6)
  - LIVER INJURY [None]
  - EXFOLIATIVE RASH [None]
  - PYREXIA [None]
  - PRURITUS [None]
  - HYPERSENSITIVITY [None]
  - EOSINOPHILIA [None]
